FAERS Safety Report 8384563-X (Version None)
Quarter: 2012Q2

REPORT INFORMATION
  Report Type: 
  Country: None (occurrence: None)
  Receive Date: 20120524
  Receipt Date: 20120518
  Transmission Date: 20120825
  Serious: Yes (Other)
  Sender: FDA-Public Use
  Company Number: US-PFIZER INC-2012122330

PATIENT
  Sex: Female
  Weight: 54.4 kg

DRUGS (2)
  1. VENLAFAXINE HCL [Suspect]
     Indication: ANXIETY
  2. VENLAFAXINE HCL [Suspect]
     Indication: DEPRESSION
     Dosage: UNK
     Dates: start: 20100801

REACTIONS (7)
  - HYPERHIDROSIS [None]
  - PANIC ATTACK [None]
  - NAUSEA [None]
  - RETCHING [None]
  - MUSCLE TWITCHING [None]
  - INFLUENZA LIKE ILLNESS [None]
  - ANXIETY [None]
